FAERS Safety Report 7430541-4 (Version None)
Quarter: 2011Q2

REPORT INFORMATION
  Report Type: 
  Country: None (occurrence: None)
  Receive Date: 20110421
  Receipt Date: 20100304
  Transmission Date: 20111010
  Serious: No
  Sender: FDA-Public Use
  Company Number: US-ASTRAZENECA-2010SE09512

PATIENT
  Age: 76 Year
  Sex: Male
  Weight: 113.4 kg

DRUGS (3)
  1. TOPROL-XL [Suspect]
     Indication: HYPERTENSION
     Route: 048
     Dates: start: 20100215, end: 20100301
  2. MAXZIDE [Concomitant]
  3. K-DUR [Concomitant]

REACTIONS (1)
  - PAIN IN EXTREMITY [None]
